FAERS Safety Report 9158433 (Version 1)
Quarter: 2013Q1

REPORT INFORMATION
  Report Type: Spontaneous
  Country: US (occurrence: US)
  Receive Date: 20130312
  Receipt Date: 20130312
  Transmission Date: 20140127
  Serious: No
  Sender: FDA-Public Use
  Company Number: US-ASTRAZENECA-2013SE13120

PATIENT
  Age: 79 Year
  Sex: Male

DRUGS (5)
  1. SEROQUEL [Suspect]
     Indication: DISCOMFORT
     Route: 048
     Dates: start: 201301
  2. SEROQUEL [Suspect]
     Indication: DISCOMFORT
     Dosage: AN EXTRA DOSE OR 2 EVERY FEW DAYS
     Route: 048
  3. LASIX [Concomitant]
  4. POTASSIUM [Concomitant]
  5. LORAZEPAM [Concomitant]

REACTIONS (8)
  - Mental disorder [Unknown]
  - Mental impairment [Unknown]
  - Emotional poverty [Unknown]
  - Hallucination [Unknown]
  - Aggression [Unknown]
  - Dyskinesia [Unknown]
  - Off label use [Unknown]
  - Off label use [Unknown]
